FAERS Safety Report 6355934-8 (Version None)
Quarter: 2009Q3

REPORT INFORMATION
  Report Type: 
  Country: None (occurrence: None)
  Receive Date: 20090914
  Receipt Date: 20090914
  Transmission Date: 20100115
  Serious: Yes (Disabling, Other)
  Sender: FDA-Public Use
  Company Number: None

PATIENT
  Age: 40 Year
  Sex: Male
  Weight: 99.7913 kg

DRUGS (1)
  1. BACTRIM [Suspect]
     Indication: STAPHYLOCOCCAL INFECTION
     Dosage: 500 MG 2X DAY PO
     Route: 048
     Dates: start: 20090827, end: 20090910

REACTIONS (7)
  - CHILLS [None]
  - DISORIENTATION [None]
  - LYMPHADENOPATHY [None]
  - MIGRAINE [None]
  - NAUSEA [None]
  - PYREXIA [None]
  - THERAPEUTIC AGENT TOXICITY [None]
